FAERS Safety Report 10241382 (Version 2)
Quarter: 2014Q2

REPORT INFORMATION
  Report Type: Spontaneous
  Country: US (occurrence: US)
  Receive Date: 20140617
  Receipt Date: 20140626
  Transmission Date: 20141212
  Serious: Yes (Hospitalization)
  Sender: FDA-Public Use
  Company Number: 2014SP001828

PATIENT
  Sex: Female

DRUGS (1)
  1. LEVALBUTEROL INHALATION SOLUTION [Suspect]
     Route: 055

REACTIONS (1)
  - Pneumonia [Unknown]
